FAERS Safety Report 8032712-5 (Version None)
Quarter: 2012Q1

REPORT INFORMATION
  Report Type: 
  Country: None (occurrence: None)
  Receive Date: 20120110
  Receipt Date: 20120105
  Transmission Date: 20120608
  Serious: Yes (Death)
  Sender: FDA-Public Use
  Company Number: US-CELGENEUS-163-21880-11072235

PATIENT
  Sex: Female
  Weight: 67.646 kg

DRUGS (7)
  1. DEXAMETHASONE [Concomitant]
     Route: 065
  2. IBUPROFEN (ADVIL) [Concomitant]
     Route: 065
  3. SIMVASTATIN [Concomitant]
     Route: 065
  4. REVLIMID [Suspect]
     Indication: MULTIPLE MYELOMA
     Dosage: 25 MILLIGRAM
     Route: 048
     Dates: start: 20110216, end: 20110708
  5. FAMOTIDINE [Concomitant]
     Route: 065
  6. DIOVAN [Concomitant]
     Route: 065
  7. LACTULOSE [Concomitant]
     Route: 065

REACTIONS (2)
  - FULL BLOOD COUNT DECREASED [None]
  - MULTIPLE MYELOMA [None]
